FAERS Safety Report 10195994 (Version 2)
Quarter: 2014Q2

REPORT INFORMATION
  Report Type: Report from Study
  Country: MX (occurrence: MX)
  Receive Date: 20140527
  Receipt Date: 20140527
  Transmission Date: 20141212
  Serious: Yes (Other)
  Sender: FDA-Public Use
  Company Number: PHHY2013MX014516

PATIENT
  Age: 70 Year
  Sex: Female

DRUGS (3)
  1. EXFORGE HCT [Suspect]
     Indication: HYPERTENSION
     Dosage: 1 DF (320/10/25 MG), DAILY
     Route: 048
     Dates: start: 201201
  2. EXFORGE HCT [Suspect]
     Dosage: 1 OR 1.5 OR HALF DF (320/10/25 MG), DAILY
  3. INSULIN [Concomitant]
     Indication: BLOOD GLUCOSE ABNORMAL
     Dosage: 22 MG, UNK

REACTIONS (9)
  - Cataract [Recovering/Resolving]
  - Retinal vascular thrombosis [Recovered/Resolved]
  - Visual impairment [Unknown]
  - Eye discharge [Recovered/Resolved]
  - Blood glucose increased [Not Recovered/Not Resolved]
  - Blood pressure decreased [Unknown]
  - Blood pressure fluctuation [Not Recovered/Not Resolved]
  - Blood pressure increased [Unknown]
  - Wrong technique in drug usage process [Not Recovered/Not Resolved]
